FAERS Safety Report 6387591-9 (Version None)
Quarter: 2009Q4

REPORT INFORMATION
  Report Type: 
  Country: None (occurrence: None)
  Receive Date: 20091005
  Receipt Date: 20090414
  Transmission Date: 20100525
  Serious: Yes (Other)
  Sender: FDA-Public Use
  Company Number: US-JNJFOC-20090404159

PATIENT
  Sex: Male

DRUGS (3)
  1. INTELENCE [Suspect]
     Indication: HIV INFECTION
     Route: 048
  2. RALTEGRAVIR [Concomitant]
     Indication: HIV INFECTION
  3. TRUVADA [Concomitant]
     Indication: HIV INFECTION

REACTIONS (6)
  - CHILLS [None]
  - CONJUNCTIVAL DISORDER [None]
  - EOSINOPHIL COUNT INCREASED [None]
  - FATIGUE [None]
  - HEADACHE [None]
  - RASH [None]
